FAERS Safety Report 7479481-5 (Version None)
Quarter: 2011Q2

REPORT INFORMATION
  Report Type: 
  Country: None (occurrence: None)
  Receive Date: 20110513
  Receipt Date: 20110510
  Transmission Date: 20111010
  Serious: Yes (Death, Hospitalization)
  Sender: FDA-Public Use
  Company Number: US-GILEAD-2011-0036897

PATIENT
  Sex: Male

DRUGS (6)
  1. LETAIRIS [Suspect]
     Indication: PULMONARY HYPERTENSION
     Route: 048
     Dates: start: 20080124
  2. REMODULIN [Concomitant]
  3. LETAIRIS [Suspect]
     Indication: CARDIAC FAILURE CONGESTIVE
  4. FLOLAN [Concomitant]
  5. LETAIRIS [Suspect]
     Indication: ISCHAEMIC CARDIOMYOPATHY
  6. VENTAVIS [Concomitant]

REACTIONS (3)
  - SYNCOPE [None]
  - DYSPNOEA [None]
  - DEATH [None]
